FAERS Safety Report 20094343 (Version 2)
Quarter: 2021Q4

REPORT INFORMATION
  Report Type: Spontaneous
  Country: US (occurrence: US)
  Receive Date: 20211122
  Receipt Date: 20211216
  Transmission Date: 20220303
  Serious: No
  Sender: FDA-Public Use
  Company Number: US-AMGEN-USASP2021178036

PATIENT

DRUGS (2)
  1. EPOETIN ALFA [Suspect]
     Active Substance: ERYTHROPOIETIN
     Indication: Nephrogenic anaemia
     Dosage: UNK
     Route: 065
  2. DAPRODUSTAT [Concomitant]
     Active Substance: DAPRODUSTAT
     Dosage: UNK UNK, 3 TIMES/WK

REACTIONS (2)
  - Blood pressure increased [Unknown]
  - Adverse event [Unknown]
